FAERS Safety Report 8657734 (Version 2)
Quarter: 2012Q4

REPORT INFORMATION
  Report Type: 
  Country: US (occurrence: US)
  Receive Date: 20120710
  Receipt Date: 20120906
  Transmission Date: 20130627
  Serious: Yes (Other)
  Sender: FDA-Public Use
  Company Number: US-JNJFOC-20120701814

PATIENT
  Age: 86 Year
  Sex: Male
  Weight: 99.79 kg

DRUGS (12)
  1. BENADRYL ALLERGY [Suspect]
     Indication: LACRIMATION INCREASED
     Route: 048
     Dates: start: 20120628, end: 20120629
  2. BENADRYL ALLERGY [Suspect]
     Indication: RHINORRHOEA
     Route: 048
     Dates: start: 20120628, end: 20120629
  3. LANTUS [Suspect]
     Indication: DIABETES MELLITUS
     Dosage: 50units once daily
     Route: 065
     Dates: start: 2006
  4. DIOVAN [Concomitant]
     Indication: HYPERTENSION
     Route: 065
  5. ATORVASTATIN [Concomitant]
     Indication: BLOOD CHOLESTEROL INCREASED
     Route: 065
  6. OMEPRAZOLE [Concomitant]
     Indication: PRODUCT USED FOR UNKNOWN INDICATION
     Route: 065
  7. FELODIPINE [Concomitant]
     Indication: HYPERTENSION
     Route: 065
  8. JANUVIA [Concomitant]
     Indication: DIABETES MELLITUS
     Dosage: one daily since 1-2 year
     Route: 065
  9. CARVEDILOL [Concomitant]
     Indication: HYPERTENSION
     Route: 065
  10. HCTZ [Concomitant]
     Indication: HYPERTENSION
     Route: 065
  11. ASPIRIN [Concomitant]
     Indication: CARDIAC DISORDER
     Route: 065
  12. EPOGEN [Concomitant]
     Indication: RED BLOOD CELL COUNT ABNORMAL
     Route: 065

REACTIONS (6)
  - Expired drug administered [Recovered/Resolved]
  - Incoherent [Recovered/Resolved]
  - Dysphemia [Recovered/Resolved]
  - Hyperhidrosis [Recovered/Resolved]
  - Hypokinesia [Recovered/Resolved]
  - Feeling abnormal [Recovered/Resolved]
